APPROVED DRUG PRODUCT: DOXAZOSIN MESYLATE
Active Ingredient: DOXAZOSIN MESYLATE
Strength: EQ 4MG BASE
Dosage Form/Route: TABLET;ORAL
Application: A205210 | Product #003 | TE Code: AB
Applicant: HERITAGE PHARMA LABS INC
Approved: Feb 13, 2018 | RLD: No | RS: No | Type: RX